APPROVED DRUG PRODUCT: EMEND
Active Ingredient: FOSAPREPITANT DIMEGLUMINE
Strength: EQ 115MG BASE/VIAL **Federal Register determination that product was not discontinued or withdrawn for safety or effectiveness reasons**
Dosage Form/Route: POWDER;INTRAVENOUS
Application: N022023 | Product #001
Applicant: MERCK AND CO INC
Approved: Jan 25, 2008 | RLD: Yes | RS: No | Type: DISCN